FAERS Safety Report 24976469 (Version 1)
Quarter: 2025Q1

REPORT INFORMATION
  Report Type: Spontaneous
  Country: DE (occurrence: DE)
  Receive Date: 20250217
  Receipt Date: 20250217
  Transmission Date: 20250409
  Serious: Yes (Life-Threatening, Hospitalization, Other)
  Sender: UCB
  Company Number: None

PATIENT
  Age: 27 Year
  Sex: Female
  Weight: 78 kg

DRUGS (7)
  1. LACOSAMIDE [Suspect]
     Active Substance: LACOSAMIDE
     Indication: Autonomic seizure
     Dates: start: 2005
  2. LACOSAMIDE [Suspect]
     Active Substance: LACOSAMIDE
     Route: 042
  3. LACOSAMIDE [Suspect]
     Active Substance: LACOSAMIDE
  4. GABAPENTIN [Suspect]
     Active Substance: GABAPENTIN
     Indication: Suicide attempt
     Route: 048
     Dates: start: 200604
  5. LACOSAMIDE [Suspect]
     Active Substance: LACOSAMIDE
     Indication: Suicide attempt
     Route: 048
     Dates: start: 200604, end: 200604
  6. TOPAMAX [Suspect]
     Active Substance: TOPIRAMATE
     Indication: Suicide attempt
     Route: 048
     Dates: start: 200604, end: 200604
  7. ZONISAMIDE [Suspect]
     Active Substance: ZONISAMIDE
     Indication: Suicide attempt
     Route: 048
     Dates: start: 200604

REACTIONS (16)
  - Generalised tonic-clonic seizure [Recovered/Resolved]
  - Coma [Recovered/Resolved]
  - Hypotension [Recovered/Resolved]
  - Pneumonia aspiration [Recovered/Resolved]
  - Encephalopathy [Unknown]
  - Blood pressure decreased [Unknown]
  - Coma [Unknown]
  - Pyrexia [Unknown]
  - Poisoning [Unknown]
  - Acidosis [Unknown]
  - Pneumonia [Unknown]
  - Blood potassium decreased [Unknown]
  - Electrocardiogram PR prolongation [Recovered/Resolved]
  - Encephalopathy [Unknown]
  - Vomiting [Unknown]
  - White blood cell count increased [Unknown]

NARRATIVE: CASE EVENT DATE: 20060401
